FAERS Safety Report 4811202-4 (Version None)
Quarter: 2005Q4

REPORT INFORMATION
  Report Type: 
  Country: None (occurrence: None)
  Receive Date: 20051027
  Receipt Date: 20030311
  Transmission Date: 20060501
  Serious: Yes (Hospitalization)
  Sender: FDA-Public Use
  Company Number: GB-SOLVAY-00205003406

PATIENT
  Age: 30772 Day
  Sex: Male
  Weight: 75 kg

DRUGS (1)
  1. PERINDOPRIL ERBUMINE [Suspect]
     Indication: CARDIAC FAILURE CONGESTIVE
     Dosage: DAILY DOSE:  UNKNOWN
     Route: 048
     Dates: start: 20000620

REACTIONS (2)
  - INGUINAL HERNIA [None]
  - INGUINAL HERNIA REPAIR [None]
